FAERS Safety Report 9117334 (Version 1)
Quarter: 2013Q1

REPORT INFORMATION
  Report Type: Spontaneous
  Country: US (occurrence: US)
  Receive Date: 20130225
  Receipt Date: 20130225
  Transmission Date: 20140127
  Serious: No
  Sender: FDA-Public Use
  Company Number: US-BIOGENIDEC-2013BI015979

PATIENT
  Age: 64 Year
  Sex: Female

DRUGS (1)
  1. AVONEX [Suspect]
     Indication: MULTIPLE SCLEROSIS
     Route: 030
     Dates: start: 20110920

REACTIONS (4)
  - Laryngitis [Recovered/Resolved]
  - Memory impairment [Recovered/Resolved]
  - Deafness [Not Recovered/Not Resolved]
  - General symptom [Not Recovered/Not Resolved]
